FAERS Safety Report 18354828 (Version 1)
Quarter: 2020Q4

REPORT INFORMATION
  Report Type: Spontaneous
  Country: US (occurrence: US)
  Receive Date: 20201007
  Receipt Date: 20201007
  Transmission Date: 20210114
  Serious: Yes (Other)
  Sender: FDA-Public Use
  Company Number: US-SA-2020SA272877

PATIENT

DRUGS (1)
  1. ZANTAC [Suspect]
     Active Substance: RANITIDINE HYDROCHLORIDE
     Dosage: UNK
     Dates: start: 1983, end: 2019

REACTIONS (4)
  - Pancreatic carcinoma [Unknown]
  - Hepatic cancer [Unknown]
  - Gastric cancer [Unknown]
  - Cerebral disorder [Unknown]

NARRATIVE: CASE EVENT DATE: 201912
